FAERS Safety Report 16397835 (Version 4)
Quarter: 2020Q1

REPORT INFORMATION
  Report Type: Report from Study
  Country: US (occurrence: US)
  Receive Date: 20190606
  Receipt Date: 20200308
  Transmission Date: 20200409
  Serious: Yes (Hospitalization, Other)
  Sender: FDA-Public Use
  Company Number: PHHY2019US126812

PATIENT
  Age: 28 Year
  Sex: Female
  Weight: 92.8 kg

DRUGS (15)
  1. PIQRAY [Suspect]
     Active Substance: ALPELISIB
     Dosage: 100 MG, QD
     Route: 048
     Dates: start: 20200210
  2. FLUVOXAMINE [Concomitant]
     Active Substance: FLUVOXAMINE
     Indication: DEPRESSION
     Dosage: 300 MG, (QPM)
     Route: 048
     Dates: start: 20200211
  3. OLANZAPINE. [Concomitant]
     Active Substance: OLANZAPINE
     Indication: PRODUCT USED FOR UNKNOWN INDICATION
     Dosage: 15 MG, QHS, 1.5 TAB BEDTIME
     Route: 048
  4. POLYETHYLENE GLYCOL 3350. [Concomitant]
     Active Substance: POLYETHYLENE GLYCOL 3350
     Indication: PRODUCT USED FOR UNKNOWN INDICATION
     Route: 065
  5. MEROPENEM. [Concomitant]
     Active Substance: MEROPENEM
     Indication: PRODUCT USED FOR UNKNOWN INDICATION
     Route: 065
  6. PIQRAY [Suspect]
     Active Substance: ALPELISIB
     Dosage: 100 MG
     Route: 048
     Dates: start: 20200219
  7. BACITRACIN. [Concomitant]
     Active Substance: BACITRACIN
     Indication: PRODUCT USED FOR UNKNOWN INDICATION
     Dosage: 1 DF, QD (1 APPLICATION)
     Route: 061
  8. VANCOMYCIN [Concomitant]
     Active Substance: VANCOMYCIN
     Indication: PRODUCT USED FOR UNKNOWN INDICATION
     Route: 065
  9. CLONIDINE. [Concomitant]
     Active Substance: CLONIDINE
     Indication: SLEEP DISORDER
     Dosage: 0.3 MG, QHS
     Route: 048
  10. ADVIL [Concomitant]
     Active Substance: IBUPROFEN
     Indication: PRODUCT USED FOR UNKNOWN INDICATION
     Route: 065
  11. SENNA [Concomitant]
     Active Substance: SENNA LEAF\SENNOSIDES\SENNOSIDES A AND B
     Indication: PRODUCT USED FOR UNKNOWN INDICATION
     Route: 048
  12. PIQRAY [Suspect]
     Active Substance: ALPELISIB
     Indication: KLIPPEL-TRENAUNAY SYNDROME
     Dosage: 250 MG, UNK
     Route: 048
     Dates: start: 20190327
  13. EPINEPHRINE. [Concomitant]
     Active Substance: EPINEPHRINE
     Indication: PRODUCT USED FOR UNKNOWN INDICATION
     Dosage: 0.3 MG, (INJECTABLE KIT), PRN
     Route: 030
  14. MORPHINE [Concomitant]
     Active Substance: MORPHINE
     Indication: PRODUCT USED FOR UNKNOWN INDICATION
     Dosage: 15 MG, Q12H
     Route: 048
  15. AVELOX [Concomitant]
     Active Substance: MOXIFLOXACIN HYDROCHLORIDE
     Indication: PRODUCT USED FOR UNKNOWN INDICATION
     Dosage: 400 MG, Q24H
     Route: 048

REACTIONS (36)
  - Infection [Recovering/Resolving]
  - Gastrooesophageal reflux disease [Not Recovered/Not Resolved]
  - Rash maculo-papular [Recovered/Resolved]
  - Hypertriglyceridaemia [Not Recovered/Not Resolved]
  - Mean cell haemoglobin concentration decreased [Unknown]
  - Sepsis [Unknown]
  - Pyrexia [Recovered/Resolved]
  - Dermatitis acneiform [Recovering/Resolving]
  - Dysphagia [Not Recovered/Not Resolved]
  - White blood cell count increased [Unknown]
  - Haemoglobin increased [Unknown]
  - Proctalgia [Recovering/Resolving]
  - Hyperglycaemia [Not Recovered/Not Resolved]
  - Pulmonary embolism [Recovering/Resolving]
  - Mucosal inflammation [Recovered/Resolved]
  - Pain in extremity [Recovered/Resolved]
  - Infection [Recovered/Resolved]
  - Vaginal haemorrhage [Recovered/Resolved]
  - Haematocrit increased [Unknown]
  - Acne [Recovering/Resolving]
  - Stomatitis [Recovered/Resolved]
  - Constipation [Unknown]
  - Red blood cell count increased [Unknown]
  - Neutrophil count increased [Unknown]
  - Basophil count increased [Unknown]
  - Apnoea [Recovering/Resolving]
  - Chills [Recovered/Resolved]
  - Body temperature increased [Unknown]
  - Mean platelet volume increased [Unknown]
  - Mean cell haemoglobin decreased [Unknown]
  - Eosinophil count increased [Unknown]
  - Carbon dioxide decreased [Unknown]
  - Rectal haemorrhage [Recovering/Resolving]
  - Thrombophlebitis superficial [Unknown]
  - Haematuria [Recovered/Resolved]
  - Vaginal haemorrhage [Recovered/Resolved]

NARRATIVE: CASE EVENT DATE: 20190328
